FAERS Safety Report 14765510 (Version 2)
Quarter: 2018Q2

REPORT INFORMATION
  Report Type: Spontaneous
  Country: CH (occurrence: CH)
  Receive Date: 20180416
  Receipt Date: 20180607
  Transmission Date: 20180711
  Serious: Yes (Life-Threatening)
  Sender: FDA-Public Use
  Company Number: CH-PFIZER INC-2018151324

PATIENT
  Age: 49 Year
  Sex: Female

DRUGS (9)
  1. ANXIOLIT [Suspect]
     Active Substance: OXAZEPAM
     Dosage: UNK
     Dates: start: 20180401, end: 20180401
  2. NOVORAPID [Concomitant]
     Active Substance: INSULIN ASPART
     Indication: TYPE 1 DIABETES MELLITUS
     Dosage: UNK
  3. ANEXATE [Concomitant]
     Active Substance: FLUMAZENIL
     Dosage: UNK
     Dates: start: 20180401, end: 20180401
  4. TEMESTA (LORAZEPAM) [Suspect]
     Active Substance: LORAZEPAM
     Indication: PSYCHOMOTOR HYPERACTIVITY
     Dosage: 18 MG (10MG + 8MG), UNK
     Route: 040
     Dates: start: 20180401, end: 20180401
  5. KETOROLAC [Concomitant]
     Active Substance: KETOROLAC\KETOROLAC TROMETHAMINE
     Dosage: UNK
     Route: 030
     Dates: start: 20180331, end: 20180331
  6. CATAPRESAN /00171101/ [Suspect]
     Active Substance: CLONIDINE
     Dosage: 150 UG, UNK
     Route: 040
     Dates: start: 20180401, end: 20180401
  7. TRAMADOL. [Suspect]
     Active Substance: TRAMADOL
     Dosage: 50 MG, UNK
     Route: 048
     Dates: start: 20180331, end: 20180331
  8. CYPROHEPTADINE. [Suspect]
     Active Substance: CYPROHEPTADINE
     Dosage: 8 MG, UNK
     Route: 048
     Dates: start: 20180401, end: 20180401
  9. METOCLOPRAMIDE. [Suspect]
     Active Substance: METOCLOPRAMIDE
     Dosage: 10 MG, UNK
     Route: 030
     Dates: start: 20180331, end: 20180331

REACTIONS (6)
  - Depressed level of consciousness [Recovered/Resolved]
  - Urinary tract infection [Unknown]
  - Pneumonia aspiration [Unknown]
  - Serotonin syndrome [Recovered/Resolved]
  - Acute respiratory failure [Recovered/Resolved]
  - Intervertebral discitis [Unknown]

NARRATIVE: CASE EVENT DATE: 20180331
